FAERS Safety Report 9414544 (Version 3)
Quarter: 2013Q3

REPORT INFORMATION
  Report Type: Spontaneous
  Country: US (occurrence: US)
  Receive Date: 20130723
  Receipt Date: 20130918
  Transmission Date: 20140515
  Serious: Yes (Death)
  Sender: FDA-Public Use
  Company Number: US-CELGENEUS-163-POMAL-13073012

PATIENT
  Age: 72 Year
  Sex: Male

DRUGS (2)
  1. POMALYST [Suspect]
     Indication: PLASMA CELL MYELOMA
     Dosage: 1 MILLIGRAM
     Route: 048
     Dates: start: 20130401
  2. KYPROLIS [Concomitant]
     Indication: DISEASE PROGRESSION
     Route: 041
     Dates: start: 201303, end: 201306

REACTIONS (1)
  - Plasma cell myeloma [Fatal]
